FAERS Safety Report 7021677-0 (Version None)
Quarter: 2010Q3

REPORT INFORMATION
  Report Type: 
  Country: None (occurrence: None)
  Receive Date: 20100928
  Receipt Date: 20100914
  Transmission Date: 20110219
  Serious: Yes (Life-Threatening)
  Sender: FDA-Public Use
  Company Number: IDR-00395

PATIENT
  Age: 83 Year
  Sex: Female

DRUGS (4)
  1. INDERAL [Suspect]
     Indication: ATRIAL FIBRILLATION
     Dosage: 10 MG TID, ORAL FORMULATION: TABLET
     Route: 048
     Dates: start: 20100625, end: 20100626
  2. LANIRAPID (METILDIGOXIN) [Concomitant]
  3. PINELLIA AND HOELEN TEAS [Concomitant]
  4. SHA-KANZO-TO [Concomitant]

REACTIONS (12)
  - COMA [None]
  - DISSEMINATED INTRAVASCULAR COAGULATION [None]
  - HEPATITIS B SURFACE ANTIGEN POSITIVE [None]
  - HYPERHIDROSIS [None]
  - HYPOGLYCAEMIA [None]
  - HYPOGLYCAEMIC ENCEPHALOPATHY [None]
  - JAUNDICE [None]
  - METABOLIC ENCEPHALOPATHY [None]
  - MULTI-ORGAN FAILURE [None]
  - NUCLEAR MAGNETIC RESONANCE IMAGING ABNORMAL [None]
  - RENAL IMPAIRMENT [None]
  - SEPSIS [None]
